FAERS Safety Report 17566453 (Version 2)
Quarter: 2020Q3

REPORT INFORMATION
  Report Type: Spontaneous
  Country: US (occurrence: US)
  Receive Date: 20200320
  Receipt Date: 20200918
  Transmission Date: 20201102
  Serious: No
  Sender: FDA-Public Use
  Company Number: US-ELI_LILLY_AND_COMPANY-US202003009197

PATIENT
  Sex: Female

DRUGS (2)
  1. EMGALITY [Suspect]
     Active Substance: GALCANEZUMAB-GNLM
     Indication: MIGRAINE PROPHYLAXIS
     Dosage: 1 DOSAGE FORM, UNKNOWN
     Route: 065
     Dates: start: 201912
  2. EMGALITY [Suspect]
     Active Substance: GALCANEZUMAB-GNLM
     Dosage: 1 DOSAGE FORM, UNKNOWN
     Route: 065

REACTIONS (2)
  - Injection site pruritus [Unknown]
  - Emotional distress [Recovered/Resolved]
